FAERS Safety Report 21667012 (Version 1)
Quarter: 2022Q4

REPORT INFORMATION
  Report Type: Report from Study
  Country: US (occurrence: US)
  Receive Date: 20221201
  Receipt Date: 20221201
  Transmission Date: 20230112
  Serious: No
  Sender: FDA-Public Use
  Company Number: US-ABBVIE-4168372

PATIENT
  Sex: Female

DRUGS (3)
  1. HUMIRA [Suspect]
     Active Substance: ADALIMUMAB
     Indication: Rheumatoid arthritis
     Dosage: FORM STRENGTH: 40 MG
     Route: 058
  2. Advil tabs [Concomitant]
     Indication: Product used for unknown indication
     Dosage: 200 MG
  3. TIZANIDINE HYDROCHLORIDE [Concomitant]
     Active Substance: TIZANIDINE HYDROCHLORIDE
     Indication: Product used for unknown indication
     Dosage: 4MG

REACTIONS (5)
  - Arthralgia [Recovered/Resolved]
  - Loss of personal independence in daily activities [Unknown]
  - Joint swelling [Recovered/Resolved]
  - Joint noise [Recovered/Resolved]
  - Pain in extremity [Recovered/Resolved]
